FAERS Safety Report 21261596 (Version 5)
Quarter: 2022Q4

REPORT INFORMATION
  Report Type: Spontaneous
  Country: DE (occurrence: DE)
  Receive Date: 20220827
  Receipt Date: 20221117
  Transmission Date: 20230112
  Serious: Yes (Other)
  Sender: FDA-Public Use
  Company Number: DE-NOVARTISPH-NVSC2022DE192344

PATIENT
  Age: 80 Year
  Sex: Female
  Weight: 62 kg

DRUGS (4)
  1. DILTIAZEM [Suspect]
     Active Substance: DILTIAZEM
     Indication: Blood pressure abnormal
     Dosage: UNK
     Route: 065
  2. ELIQUIS [Suspect]
     Active Substance: APIXABAN
     Indication: Cerebrovascular accident prophylaxis
     Dosage: 5 MG (0.5 DAY)
     Route: 048
     Dates: start: 202109
  3. VERAPAMIL HYDROCHLORIDE [Suspect]
     Active Substance: VERAPAMIL HYDROCHLORIDE
     Indication: Blood pressure abnormal
     Dosage: UNK UNK, TID (0.33 DAY) (VERAHEXAL 80)
     Route: 048
     Dates: start: 20220803
  4. TORSEMIDE [Concomitant]
     Active Substance: TORSEMIDE
     Indication: Product used for unknown indication
     Dosage: UNK UNK, QD (IN THE MORNINGS)
     Route: 065

REACTIONS (7)
  - Arrhythmia [Unknown]
  - Aortic valve incompetence [Unknown]
  - Atrial fibrillation [Not Recovered/Not Resolved]
  - Visual impairment [Not Recovered/Not Resolved]
  - Hypertensive heart disease [Unknown]
  - Epistaxis [Recovered/Resolved]
  - Heart rate increased [Not Recovered/Not Resolved]
